FAERS Safety Report 20664345 (Version 3)
Quarter: 2022Q2

REPORT INFORMATION
  Report Type: Spontaneous
  Country: US (occurrence: None)
  Receive Date: 20220401
  Receipt Date: 20220526
  Transmission Date: 20220721
  Serious: Yes (Other)
  Sender: FDA-Public Use
  Company Number: 2022A124867

PATIENT
  Age: 22819 Day
  Sex: Male
  Weight: 102.1 kg

DRUGS (1)
  1. EVUSHELD [Suspect]
     Active Substance: CILGAVIMAB\TIXAGEVIMAB
     Indication: Multiple sclerosis
     Dosage: 150MG OF THE TIXAGEVIMAB AND 150MG OF THE CILGAVIMAB150.0MG ONCE/SINGLE ADMINISTRATION
     Route: 030
     Dates: start: 20220216, end: 20220216

REACTIONS (1)
  - Deep vein thrombosis [Recovering/Resolving]

NARRATIVE: CASE EVENT DATE: 20220311
